FAERS Safety Report 16652173 (Version 1)
Quarter: 2019Q3

REPORT INFORMATION
  Report Type: Spontaneous
  Country: US (occurrence: US)
  Receive Date: 20190730
  Receipt Date: 20190730
  Transmission Date: 20191004
  Serious: Yes (Hospitalization)
  Sender: FDA-Public Use
  Company Number: None

PATIENT
  Age: 61 Year
  Sex: Male

DRUGS (7)
  1. REPATHA [Suspect]
     Active Substance: EVOLOCUMAB
     Indication: HYPERLIPIDAEMIA
     Dosage: ?          OTHER FREQUENCY:EVERY 2 WEEKS;?
     Route: 058
     Dates: start: 20190328
  2. METOPROLOL SUC TAB 25 MG ER [Concomitant]
  3. RANOLAZINE TAB 1000 MG [Concomitant]
  4. OXYCOD/APAP TAB 10-325 MG [Concomitant]
  5. NITROGLYCERIN SUB 0.4 MG [Concomitant]
  6. CLOPIDIGREL TAB 75 MG [Concomitant]
  7. FENOFIBRATE TAB 145 MG [Concomitant]

REACTIONS (2)
  - Therapy cessation [None]
  - Hospitalisation [None]
